FAERS Safety Report 8397464-8 (Version None)
Quarter: 2012Q2

REPORT INFORMATION
  Report Type: 
  Country: None (occurrence: None)
  Receive Date: 20120531
  Receipt Date: 20120521
  Transmission Date: 20120825
  Serious: No
  Sender: FDA-Public Use
  Company Number: US-JNJFOC-20120516569

PATIENT
  Sex: Male
  Weight: 114.31 kg

DRUGS (3)
  1. NOVOLOG [Concomitant]
     Indication: DIABETES MELLITUS
     Dosage: 15U
     Route: 058
     Dates: start: 20060101
  2. LANTUS [Concomitant]
     Indication: DIABETES MELLITUS
     Dosage: 65 U AT BEDTIME
     Route: 058
     Dates: start: 20060101
  3. DURAGESIC-100 [Suspect]
     Indication: BACK PAIN
     Route: 062
     Dates: start: 20120301

REACTIONS (2)
  - PRODUCT ADHESION ISSUE [None]
  - WRONG TECHNIQUE IN DRUG USAGE PROCESS [None]
